FAERS Safety Report 9865059 (Version 1)
Quarter: 2014Q1

REPORT INFORMATION
  Report Type: Spontaneous
  Country: US (occurrence: US)
  Receive Date: 20140203
  Receipt Date: 20140203
  Transmission Date: 20141002
  Serious: No
  Sender: FDA-Public Use
  Company Number: US-AMGEN-USASP2014005781

PATIENT
  Age: 57 Year
  Sex: Female

DRUGS (2)
  1. ENBREL [Suspect]
     Indication: RHEUMATOID ARTHRITIS
     Dosage: 50 MG, QWK
     Route: 065
     Dates: start: 20131101, end: 20131129
  2. METHOTREXATE [Concomitant]
     Dosage: UNK

REACTIONS (12)
  - Dysphagia [Recovered/Resolved]
  - Dysphonia [Recovered/Resolved]
  - Erythema [Recovered/Resolved]
  - Pruritus [Recovered/Resolved]
  - Pain in extremity [Recovered/Resolved]
  - Local swelling [Recovered/Resolved]
  - Arthralgia [Recovered/Resolved]
  - Joint swelling [Recovered/Resolved]
  - Tremor [Recovered/Resolved]
  - Chills [Recovered/Resolved]
  - Injection site pruritus [Recovered/Resolved]
  - Injection site erythema [Recovered/Resolved]
